FAERS Safety Report 22541952 (Version 19)
Quarter: 2024Q3

REPORT INFORMATION
  Report Type: Spontaneous
  Country: IN (occurrence: IN)
  Receive Date: 20230609
  Receipt Date: 20240924
  Transmission Date: 20241016
  Serious: Yes (Disabling, Other)
  Sender: PFIZER
  Company Number: IN-PFIZER INC-PV202300019259

PATIENT
  Age: 71 Year
  Sex: Female
  Weight: 64.6 kg

DRUGS (9)
  1. PALBOCICLIB [Suspect]
     Active Substance: PALBOCICLIB
     Indication: Breast cancer metastatic
     Dosage: 100 MG, CYCLIC (ONCE DAILY FOR 21 DAYS, THEN GAP OF 7 DAYS))
     Route: 048
     Dates: start: 20211223
  2. FEMARA [Concomitant]
     Active Substance: LETROZOLE
     Dosage: 2.5 MG, 1X/DAY
  3. CALCIUM\CHOLECALCIFEROL [Concomitant]
     Active Substance: CALCIUM\CHOLECALCIFEROL
     Dosage: 500 MG, 1X/DAY
  4. ALENDRONIC ACID [Concomitant]
     Active Substance: ALENDRONIC ACID
     Dosage: 30 MG, WEEKLY
  5. CHOLECALCIFEROL [Concomitant]
     Active Substance: CHOLECALCIFEROL
     Dosage: 1 DF, WEEKLY
  6. CHOLECALCIFEROL [Concomitant]
     Active Substance: CHOLECALCIFEROL
     Dosage: 1 TAB ONCE MONTHLY
  7. ALENDRONATE SODIUM [Concomitant]
     Active Substance: ALENDRONATE SODIUM
     Dosage: 30 MG, WEEKLY (EVERY WEEK)
  8. ALENDRONATE SODIUM [Concomitant]
     Active Substance: ALENDRONATE SODIUM
     Dosage: 70 MG, WEEKLY (EVERY WEEK)
  9. TAMOXIFEN [Concomitant]
     Active Substance: TAMOXIFEN
     Indication: Breast cancer metastatic
     Dosage: 20 MG, 1X/DAY

REACTIONS (13)
  - Inflammation [Not Recovered/Not Resolved]
  - Pain in extremity [Not Recovered/Not Resolved]
  - Arthralgia [Not Recovered/Not Resolved]
  - Body mass index abnormal [Unknown]
  - Blood pressure diastolic decreased [Unknown]
  - Hypothyroidism [Recovering/Resolving]
  - Blood pressure systolic increased [Unknown]
  - Bone density decreased [Unknown]
  - Oedema peripheral [Not Recovered/Not Resolved]
  - Pain [Not Recovered/Not Resolved]
  - Neutrophil count decreased [Unknown]
  - Neoplasm progression [Not Recovered/Not Resolved]
  - White blood cell count decreased [Recovered/Resolved with Sequelae]

NARRATIVE: CASE EVENT DATE: 20220822
